FAERS Safety Report 9557470 (Version 3)
Quarter: 2014Q1

REPORT INFORMATION
  Report Type: Spontaneous
  Country: GB (occurrence: None)
  Receive Date: 20130924
  Receipt Date: 20140106
  Transmission Date: 20141002
  Serious: Yes (Death)
  Sender: FDA-Public Use
  Company Number: AUR-APL-2013-07678

PATIENT
  Age: 69 Year
  Sex: Female

DRUGS (3)
  1. SERTRALINE [Suspect]
     Indication: DEPRESSION
     Route: 048
     Dates: start: 20130802, end: 201308
  2. METHOTREXATE (METHOTREXATE) [Concomitant]
  3. PREDNISOLONE (PREDNISOLONE) [Concomitant]

REACTIONS (2)
  - Toxic epidermal necrolysis [None]
  - Stevens-Johnson syndrome [None]
